FAERS Safety Report 24121468 (Version 4)
Quarter: 2024Q3

REPORT INFORMATION
  Report Type: Spontaneous
  Country: US (occurrence: US)
  Receive Date: 20240722
  Receipt Date: 20240916
  Transmission Date: 20241016
  Serious: No
  Sender: PFIZER
  Company Number: US-PFIZER INC-202400218934

PATIENT
  Age: 80 Year
  Sex: Male
  Weight: 73.016 kg

DRUGS (1)
  1. ELREXFIO [Suspect]
     Active Substance: ELRANATAMAB-BCMM
     Indication: Plasma cell myeloma
     Dosage: AM
     Route: 058
     Dates: start: 20240604, end: 20240621

REACTIONS (3)
  - Decreased appetite [Recovering/Resolving]
  - Dry mouth [Recovered/Resolved]
  - Asthenia [Not Recovered/Not Resolved]

NARRATIVE: CASE EVENT DATE: 20240612
